FAERS Safety Report 9353686 (Version 1)
Quarter: 2013Q2

REPORT INFORMATION
  Report Type: Spontaneous
  Country: US (occurrence: None)
  Receive Date: 20130612
  Receipt Date: 20130612
  Transmission Date: 20140414
  Serious: Yes (Other)
  Sender: FDA-Public Use
  Company Number: 2013-001777

PATIENT
  Age: 69 Year
  Sex: Female

DRUGS (4)
  1. ASACOL [Suspect]
     Indication: COLITIS
     Route: 048
     Dates: start: 2007, end: 201304
  2. DELZICOL [Suspect]
     Indication: COLITIS
     Route: 048
     Dates: start: 201305
  3. UNSPECIFIED INGREDIENT [Suspect]
     Indication: EPISTAXIS
     Dosage: TWICE EVERY HOUR, NASAL
     Route: 045
     Dates: start: 2007, end: 20110209
  4. UNSPECIFIED INGREDIENT [Suspect]
     Indication: NASAL DISORDER
     Dosage: TWICE EVERY HOUR, NASAL
     Route: 045
     Dates: start: 2007, end: 20110209

REACTIONS (9)
  - Atrial fibrillation [None]
  - Nasal discomfort [None]
  - Throat irritation [None]
  - Epistaxis [None]
  - Swollen tongue [None]
  - Nasal dryness [None]
  - Lip swelling [None]
  - Eye irritation [None]
  - Eye irritation [None]
